FAERS Safety Report 21245017 (Version 1)
Quarter: 2022Q3

REPORT INFORMATION
  Report Type: Report from Study
  Country: IT (occurrence: IT)
  Receive Date: 20220823
  Receipt Date: 20220823
  Transmission Date: 20221027
  Serious: Yes (Other)
  Sender: FDA-Public Use
  Company Number: IT-GILEAD-2022-0593790

PATIENT
  Sex: Female

DRUGS (3)
  1. SACITUZUMAB GOVITECAN [Suspect]
     Active Substance: SACITUZUMAB GOVITECAN
     Indication: Product used for unknown indication
     Dosage: UNK
     Route: 042
     Dates: end: 202205
  2. SACITUZUMAB GOVITECAN [Suspect]
     Active Substance: SACITUZUMAB GOVITECAN
     Dosage: REDUCED DOSE
     Route: 042
     Dates: start: 20220512, end: 20220601
  3. FILGRASTIM [Concomitant]
     Active Substance: FILGRASTIM

REACTIONS (2)
  - Disease progression [Not Recovered/Not Resolved]
  - Neutropenia [Not Recovered/Not Resolved]

NARRATIVE: CASE EVENT DATE: 20220601
